FAERS Safety Report 5108812-6 (Version None)
Quarter: 2006Q3

REPORT INFORMATION
  Report Type: 
  Country: None (occurrence: None)
  Receive Date: 20060920
  Receipt Date: 20050321
  Transmission Date: 20061208
  Serious: Yes (Other)
  Sender: FDA-Public Use
  Company Number: US-BAYER-200510547BWH

PATIENT
  Age: 75 Year
  Sex: Male
  Weight: 71 kg

DRUGS (4)
  1. LEVITRA [Suspect]
     Indication: ERECTILE DYSFUNCTION
     Dosage: TOTAL DAILY DOSE: 10 MG  UNIT DOSE: 10 MG
     Route: 048
  2. LEVITRA [Suspect]
     Dosage: TOTAL DAILY DOSE: 5 MG  UNIT DOSE: 10 MG
     Route: 048
     Dates: start: 20050320
  3. VIAGRA [Suspect]
     Indication: ERECTILE DYSFUNCTION
  4. ASPIRIN [Concomitant]
     Dosage: AS USED: 81 MG  UNIT DOSE: 81 MG
     Dates: start: 20041206

REACTIONS (25)
  - AMAUROSIS FUGAX [None]
  - AMNESIA [None]
  - APATHY [None]
  - BLINDNESS TRANSIENT [None]
  - BLOOD CHOLESTEROL INCREASED [None]
  - BLOOD PRESSURE DECREASED [None]
  - CATARACT [None]
  - CEREBRAL ATROPHY [None]
  - CEREBRAL ISCHAEMIA [None]
  - DEAFNESS [None]
  - DIZZINESS [None]
  - DRUG INEFFECTIVE [None]
  - EYE PAIN [None]
  - FATIGUE [None]
  - GLAUCOMA [None]
  - HEADACHE [None]
  - HEART RATE DECREASED [None]
  - MACULAR DEGENERATION [None]
  - MALAISE [None]
  - OPTIC NERVE CUP/DISC RATIO INCREASED [None]
  - PHOTOPSIA [None]
  - RETINOPATHY [None]
  - SYNCOPE [None]
  - VISUAL DISTURBANCE [None]
  - VOMITING [None]
